FAERS Safety Report 9400038 (Version 1)
Quarter: 2013Q3

REPORT INFORMATION
  Report Type: Spontaneous
  Country: BR (occurrence: BR)
  Receive Date: 20130715
  Receipt Date: 20130715
  Transmission Date: 20140515
  Serious: Yes (Other)
  Sender: FDA-Public Use
  Company Number: BR-PFIZER INC-2013203445

PATIENT
  Age: 65 Year
  Sex: Female

DRUGS (2)
  1. FRONTAL [Suspect]
     Indication: NERVOUSNESS
     Dosage: 1 TABLET (2 MG), 1X/DAY
     Route: 048
     Dates: start: 20100708
  2. FRONTAL [Suspect]
     Indication: ANXIETY

REACTIONS (1)
  - Vascular occlusion [Unknown]
